FAERS Safety Report 7508972-3 (Version None)
Quarter: 2011Q2

REPORT INFORMATION
  Report Type: 
  Country: None (occurrence: None)
  Receive Date: 20110527
  Receipt Date: 20110526
  Transmission Date: 20111010
  Serious: Yes (Hospitalization)
  Sender: FDA-Public Use
  Company Number: US-PFIZER INC-2011110658

PATIENT
  Sex: Male

DRUGS (7)
  1. CELEXA [Suspect]
     Dosage: 40 MG, 1X/DAY
     Dates: start: 20110201
  2. WELLBUTRIN [Suspect]
     Indication: DEPRESSION
     Dosage: 150 MG, 1X/DAY
     Dates: start: 20110101, end: 20110101
  3. VENLAFAXINE [Suspect]
     Indication: DEPRESSION
     Dosage: 75 MG, 2X/DAY
     Dates: start: 20110101, end: 20110101
  4. EFFEXOR [Suspect]
     Indication: DEPRESSION
     Dosage: UNK
  5. CELEXA [Suspect]
     Indication: DEPRESSION
     Dosage: UNK
  6. XANAX [Suspect]
     Indication: ANXIETY
     Dosage: 1 MG, 2X/DAY
     Route: 048
     Dates: start: 20080101
  7. ZOLOFT [Suspect]
     Indication: DEPRESSION
     Dosage: UNK

REACTIONS (4)
  - BRACHIAL PLEXOPATHY [None]
  - DRUG INEFFECTIVE [None]
  - FEELING ABNORMAL [None]
  - NERVOUSNESS [None]
